FAERS Safety Report 18458299 (Version 2)
Quarter: 2021Q2

REPORT INFORMATION
  Report Type: Spontaneous
  Country: US (occurrence: US)
  Receive Date: 20201103
  Receipt Date: 20210519
  Transmission Date: 20210717
  Serious: No
  Sender: FDA-Public Use
  Company Number: US-PFIZER INC-2020421747

PATIENT
  Age: 79 Year
  Sex: Female

DRUGS (1)
  1. IBRANCE [Suspect]
     Active Substance: PALBOCICLIB
     Dosage: UNK

REACTIONS (4)
  - Arthropathy [Unknown]
  - Abdominal discomfort [Unknown]
  - Fatigue [Unknown]
  - Gait disturbance [Unknown]

NARRATIVE: CASE EVENT DATE: 20201029
